FAERS Safety Report 22115049 (Version 1)
Quarter: 2023Q1

REPORT INFORMATION
  Report Type: Spontaneous
  Country: KR (occurrence: KR)
  Receive Date: 20230320
  Receipt Date: 20230320
  Transmission Date: 20230417
  Serious: Yes (Other)
  Sender: FDA-Public Use
  Company Number: KR-MYLANLABS-2023M1028107

PATIENT
  Age: 85 Year
  Sex: Male

DRUGS (2)
  1. CELEBREX [Suspect]
     Active Substance: CELECOXIB
     Indication: Post laminectomy syndrome
     Dosage: 200 MILLIGRAM, BID (0.5 DAY)
     Route: 065
     Dates: start: 20210506, end: 20210727
  2. ACETAMINOPHEN [Suspect]
     Active Substance: ACETAMINOPHEN
     Indication: Post laminectomy syndrome
     Dosage: 650 MILLIGRAM, BID (0.5 DAY)
     Route: 065
     Dates: start: 20210506, end: 20210727

REACTIONS (2)
  - Angioedema [Recovered/Resolved]
  - Off label use [Unknown]

NARRATIVE: CASE EVENT DATE: 20210506
